FAERS Safety Report 8068325-9 (Version None)
Quarter: 2012Q1

REPORT INFORMATION
  Report Type: 
  Country: None (occurrence: None)
  Receive Date: 20120124
  Receipt Date: 20111013
  Transmission Date: 20120608
  Serious: No
  Sender: FDA-Public Use
  Company Number: US-AMGEN-USASP2011053046

PATIENT
  Age: 62 Year
  Sex: Female

DRUGS (9)
  1. CRESTOR [Concomitant]
  2. CALCET                             /00637401/ [Concomitant]
     Dosage: UNK
  3. ADVAIR DISKUS 100/50 [Concomitant]
  4. CRESTOR [Concomitant]
  5. CALCET                             /00637401/ [Concomitant]
  6. ANTIHYPERTENSIVES [Concomitant]
     Dates: end: 20110501
  7. IBUPROFEN (ADVIL) [Concomitant]
  8. PROLIA [Suspect]
     Indication: OSTEOPOROSIS POSTMENOPAUSAL
     Dates: start: 20110412
  9. TRIAMCINOLONE                      /00031902/ [Concomitant]

REACTIONS (3)
  - OEDEMA [None]
  - PRURITUS [None]
  - BLISTER [None]
